FAERS Safety Report 20020945 (Version 2)
Quarter: 2021Q4

REPORT INFORMATION
  Report Type: Report from Study
  Country: US (occurrence: US)
  Receive Date: 20211101
  Receipt Date: 20211103
  Transmission Date: 20220303
  Serious: No
  Sender: FDA-Public Use
  Company Number: US-NOVARTISTESTPH-NVSC2021US248128

PATIENT
  Sex: Female

DRUGS (1)
  1. KESIMPTA [Suspect]
     Active Substance: OFATUMUMAB
     Indication: Multiple sclerosis
     Dosage: UNK, QMO
     Route: 058
     Dates: start: 202107

REACTIONS (8)
  - Chills [Recovered/Resolved]
  - Dizziness [Recovered/Resolved]
  - Mobility decreased [Not Recovered/Not Resolved]
  - Asthenia [Unknown]
  - Hypoaesthesia [Unknown]
  - Fatigue [Unknown]
  - Headache [Unknown]
  - Cognitive disorder [Unknown]
